FAERS Safety Report 5400806-6 (Version None)
Quarter: 2007Q3

REPORT INFORMATION
  Report Type: 
  Country: None (occurrence: None)
  Receive Date: 20070730
  Receipt Date: 20070717
  Transmission Date: 20080115
  Serious: Yes (Other)
  Sender: FDA-Public Use
  Company Number: US-SHR-US-2007-014170

PATIENT
  Age: 41 Year
  Sex: Female
  Weight: 63.492 kg

DRUGS (3)
  1. BETASERON [Suspect]
     Indication: RELAPSING-REMITTING MULTIPLE SCLEROSIS
     Dosage: 4 MIU, EVERY 2D
     Route: 058
     Dates: start: 20070311, end: 20070101
  2. BETASERON [Suspect]
     Dosage: 8 MIU, EVERY 2D
     Route: 058
     Dates: start: 20070101, end: 20070501
  3. COPAXONE [Suspect]
     Indication: RELAPSING-REMITTING MULTIPLE SCLEROSIS
     Dates: start: 20070101

REACTIONS (7)
  - DERMATITIS BULLOUS [None]
  - HYPERSENSITIVITY [None]
  - INJECTION SITE REACTION [None]
  - MUSCLE SPASMS [None]
  - MYALGIA [None]
  - ORAL MUCOSAL BLISTERING [None]
  - RASH PAPULAR [None]
